FAERS Safety Report 21469223 (Version 2)
Quarter: 2022Q4

REPORT INFORMATION
  Report Type: Spontaneous
  Country: TR (occurrence: TR)
  Receive Date: 20221018
  Receipt Date: 20221110
  Transmission Date: 20230113
  Serious: Yes (Hospitalization)
  Sender: FDA-Public Use
  Company Number: TR-NOVOPROD-966621

PATIENT
  Sex: Female
  Weight: 2.8 kg

DRUGS (3)
  1. LEVEMIR [Suspect]
     Active Substance: INSULIN DETEMIR
     Indication: Gestational diabetes
     Dosage: 7 IU, QD
     Route: 064
     Dates: end: 20220213
  2. OKSAPAR [Concomitant]
     Indication: Pregnancy
     Dosage: 0.4 MG, QD
     Route: 064
  3. FERROUS GLYCINE SULFATE [Concomitant]
     Active Substance: FERROUS GLYCINE SULFATE
     Indication: Pregnancy
     Dosage: UNK, QD
     Route: 064

REACTIONS (2)
  - Neonatal respiratory failure [Recovered/Resolved]
  - Foetal exposure during pregnancy [Recovered/Resolved]

NARRATIVE: CASE EVENT DATE: 20220213
